FAERS Safety Report 7528199-9 (Version None)
Quarter: 2011Q2

REPORT INFORMATION
  Report Type: 
  Country: None (occurrence: None)
  Receive Date: 20110607
  Receipt Date: 20110217
  Transmission Date: 20111010
  Serious: No
  Sender: FDA-Public Use
  Company Number: US-ASTRAZENECA-2011SE09503

PATIENT
  Age: 47 Year
  Sex: Female
  Weight: 49 kg

DRUGS (7)
  1. CALCIUM CARBONATE [Concomitant]
  2. KLONOPIN [Concomitant]
  3. OMEPRAZOLE [Suspect]
     Route: 048
  4. NEXIUM [Suspect]
     Indication: GASTROOESOPHAGEAL REFLUX DISEASE
     Route: 048
  5. CLARITIN [Concomitant]
  6. VITAMIN D [Concomitant]
  7. CULTURELLE [Concomitant]

REACTIONS (1)
  - HYPOAESTHESIA [None]
